FAERS Safety Report 20742492 (Version 1)
Quarter: 2022Q2

REPORT INFORMATION
  Report Type: Spontaneous
  Country: US (occurrence: US)
  Receive Date: 20220424
  Receipt Date: 20220424
  Transmission Date: 20220720
  Serious: No
  Sender: FDA-Public Use
  Company Number: US-BRISTOL-MYERS SQUIBB COMPANY-2022-019879

PATIENT
  Age: 70 Year
  Sex: Female
  Weight: 57.6 kg

DRUGS (1)
  1. REVLIMID [Suspect]
     Active Substance: LENALIDOMIDE
     Indication: Plasma cell myeloma
     Dosage: DOSE: 25 MILLIGRAM, FREQ: DAILY 21D ON, 7 DAYS OFF
     Route: 048
     Dates: start: 20220315

REACTIONS (2)
  - Headache [Unknown]
  - Peripheral swelling [Unknown]
